FAERS Safety Report 16032996 (Version 1)
Quarter: 2019Q1

REPORT INFORMATION
  Report Type: Report from Study
  Country: IT (occurrence: IT)
  Receive Date: 20190305
  Receipt Date: 20190305
  Transmission Date: 20190418
  Serious: Yes (Other)
  Sender: FDA-Public Use
  Company Number: IT-ACCORD-107762

PATIENT
  Age: 74 Year
  Sex: Female

DRUGS (8)
  1. CATAPRESAN [Interacting]
     Active Substance: CLONIDINE
     Indication: HYPERTENSION
     Dosage: 150 MICROGRAM
     Route: 048
     Dates: start: 20180501, end: 20180619
  2. BISOPROLOL [Interacting]
     Active Substance: BISOPROLOL
     Indication: HYPERTENSION
     Dosage: 3.75 MG, QD
     Route: 048
     Dates: start: 20160101, end: 20180619
  3. CARDICOR [Interacting]
     Active Substance: BISOPROLOL
     Indication: HYPERTENSION
     Route: 048
     Dates: start: 20160101, end: 20180619
  4. SIMVASTATIN. [Concomitant]
     Active Substance: SIMVASTATIN
     Route: 048
     Dates: start: 20160101, end: 20180619
  5. RAMIPRIL. [Suspect]
     Active Substance: RAMIPRIL
     Indication: HYPERTENSION
     Dosage: 5 MG
     Route: 048
     Dates: start: 20160101, end: 20180619
  6. ASPIRINETTA [Concomitant]
     Active Substance: ASPIRIN
     Dosage: 100 MG, QD
     Route: 048
     Dates: start: 20160101, end: 20180619
  7. DIBASE [Concomitant]
     Active Substance: CHOLECALCIFEROL
     Dosage: 10,000 U.I./ML
     Route: 048
     Dates: start: 20160101, end: 20180619
  8. CLONIDINE. [Interacting]
     Active Substance: CLONIDINE
     Indication: HYPERTENSION
     Dosage: 450 UG, QD
     Route: 048
     Dates: start: 20180501, end: 20180619

REACTIONS (5)
  - Pruritus [Recovering/Resolving]
  - Drug interaction [Unknown]
  - Drug ineffective [Unknown]
  - Skin lesion [Recovering/Resolving]
  - Hypertensive crisis [Recovering/Resolving]

NARRATIVE: CASE EVENT DATE: 20180619
